FAERS Safety Report 24528117 (Version 1)
Quarter: 2024Q4

REPORT INFORMATION
  Report Type: Spontaneous
  Country: US (occurrence: None)
  Receive Date: 20241018
  Receipt Date: 20241018
  Transmission Date: 20250115
  Serious: Yes (Death, Hospitalization)
  Sender: Public
  Company Number: None

PATIENT
  Age: 77 Year
  Sex: Male
  Weight: 114 kg

DRUGS (1)
  1. APIXABAN [Suspect]
     Active Substance: APIXABAN
     Indication: Atrial fibrillation
     Dosage: FREQUENCY : TWICE A DAY;?
     Route: 048
     Dates: start: 20210608, end: 20240213

REACTIONS (5)
  - Gastrointestinal haemorrhage [None]
  - Gastric varices [None]
  - Unevaluable event [None]
  - Pneumonia [None]
  - Unresponsive to stimuli [None]

NARRATIVE: CASE EVENT DATE: 20240213
